FAERS Safety Report 8343760-X (Version None)
Quarter: 2012Q2

REPORT INFORMATION
  Report Type: 
  Country: None (occurrence: None)
  Receive Date: 20120508
  Receipt Date: 20120426
  Transmission Date: 20120825
  Serious: Yes (Other)
  Sender: FDA-Public Use
  Company Number: RU-BAYER-2012-041140

PATIENT
  Age: 22 Year
  Sex: Female

DRUGS (1)
  1. DROSPIRENONE AND ETHINYL ESTRADIOL [Suspect]
     Indication: CONTRACEPTION
     Dosage: UNK
     Route: 048
     Dates: start: 20090101, end: 20120301

REACTIONS (4)
  - ABORTION THREATENED [None]
  - ABDOMINAL PAIN [None]
  - HAEMORRHAGE IN PREGNANCY [None]
  - PREGNANCY ON ORAL CONTRACEPTIVE [None]
